FAERS Safety Report 15357792 (Version 1)
Quarter: 2018Q3

REPORT INFORMATION
  Report Type: Spontaneous
  Country: US (occurrence: US)
  Receive Date: 20180906
  Receipt Date: 20180906
  Transmission Date: 20181010
  Serious: Yes (Hospitalization)
  Sender: FDA-Public Use
  Company Number: US-LANNETT COMPANY, INC.-US-2018LAN001027

PATIENT
  Age: 33 Year
  Sex: Female

DRUGS (2)
  1. HYDROMORPHONE HYDROCHLORIDE (8MG) [Suspect]
     Active Substance: HYDROMORPHONE HYDROCHLORIDE
     Indication: PRODUCT USED FOR UNKNOWN INDICATION
     Dosage: UNK (CRUSHING TABLETS AND INJECTED VIA PICC LINE)
     Route: 042
  2. TALC [Suspect]
     Active Substance: TALC
     Indication: PRODUCT USED FOR UNKNOWN INDICATION
     Dosage: UNK (CRUSHING TABLETS AND INJECTED VIA PICC LINE)
     Route: 042

REACTIONS (5)
  - Intentional product misuse [Unknown]
  - Foreign body reaction [Unknown]
  - Hypoxia [Recovered/Resolved]
  - Tachycardia [Recovering/Resolving]
  - Pulmonary hypertension [Recovered/Resolved]
